FAERS Safety Report 20421172 (Version 1)
Quarter: 2022Q1

REPORT INFORMATION
  Report Type: Spontaneous
  Country: US (occurrence: US)
  Receive Date: 20220203
  Receipt Date: 20220203
  Transmission Date: 20220424
  Serious: No
  Sender: FDA-Public Use
  Company Number: US-PFIZER INC-2021683213

PATIENT
  Age: 55 Year
  Sex: Female
  Weight: 102.04 kg

DRUGS (1)
  1. IBRANCE [Suspect]
     Active Substance: PALBOCICLIB
     Indication: Breast cancer female
     Dosage: 125 MG, 1X/DAY (125 MG TABLETS 21^S)
     Route: 048

REACTIONS (2)
  - Nausea [Unknown]
  - Asthma [Recovering/Resolving]
